FAERS Safety Report 11897804 (Version 1)
Quarter: 2016Q1

REPORT INFORMATION
  Report Type: Spontaneous
  Country: None (occurrence: None)
  Receive Date: 20160107
  Receipt Date: 20160107
  Transmission Date: 20160526
  Serious: Yes (Other)
  Sender: FDA-Public Use
  Company Number: None

PATIENT
  Age: 33 Year
  Sex: Female
  Weight: 60 kg

DRUGS (1)
  1. MIRENA [Suspect]
     Active Substance: LEVONORGESTREL
     Indication: CONTRACEPTION
     Route: 067

REACTIONS (4)
  - Headache [None]
  - Menorrhagia [None]
  - Coital bleeding [None]
  - Dermatitis [None]

NARRATIVE: CASE EVENT DATE: 20160107
